FAERS Safety Report 20833658 (Version 1)
Quarter: 2022Q2

REPORT INFORMATION
  Report Type: 
  Country: None (occurrence: None)
  Receive Date: 20220516
  Receipt Date: 20220516
  Transmission Date: 20220721
  Serious: No
  Sender: FDA-Public Use
  Company Number: JP-CHUGAI-2022006849

PATIENT
  Weight: 60.7 kg

DRUGS (7)
  1. POLATUZUMAB VEDOTIN [Suspect]
     Active Substance: POLATUZUMAB VEDOTIN
     Dosage: ON 29/SEP/2021, SHE RECEIVED MOST RECENT DOSE OF POLATUZUMAB VEDOTIN.
     Dates: start: 20210908
  2. BENDAMUSTINE HYDROCHLORIDE [Suspect]
     Active Substance: BENDAMUSTINE HYDROCHLORIDE
     Dosage: ON 29/SEP/2021, SHE RECEIVED MOST RECENT DOSE OF BENDAMUSTINE HYDROCHLORIDE.
     Dates: start: 20210908
  3. RITUXIMAB [Concomitant]
     Active Substance: RITUXIMAB
     Dosage: UNK
     Dates: start: 20210907, end: 20210928
  4. FLUCONAZOLE [Concomitant]
     Active Substance: FLUCONAZOLE
     Dosage: UNK
     Dates: end: 20211018
  5. LEVOFLOXACIN HEMIHYDRATE [Concomitant]
     Active Substance: LEVOFLOXACIN
     Dosage: UNK
     Dates: end: 20210915
  6. PENTAMIDINE [Concomitant]
     Active Substance: PENTAMIDINE
     Dosage: UNK
     Dates: end: 20211005
  7. ZOVIRAX [Concomitant]
     Active Substance: ACYCLOVIR
     Dosage: UNK
     Dates: start: 20210910, end: 20211018

REACTIONS (4)
  - Viral haemorrhagic cystitis [None]
  - Hypokalaemia [None]
  - Cytomegalovirus viraemia [None]
  - Drug ineffective [None]

NARRATIVE: CASE EVENT DATE: 20210920
